FAERS Safety Report 19799772 (Version 3)
Quarter: 2021Q3

REPORT INFORMATION
  Report Type: Spontaneous
  Country: KR (occurrence: KR)
  Receive Date: 20210907
  Receipt Date: 20210920
  Transmission Date: 20211014
  Serious: Yes (Death)
  Sender: FDA-Public Use
  Company Number: KR-OTSUKA-2021_030872

PATIENT
  Age: 19 Year
  Sex: Male

DRUGS (9)
  1. GRANDAXIN [Concomitant]
     Active Substance: TOFISOPAM
     Indication: PRODUCT USED FOR UNKNOWN INDICATION
     Dosage: 1T
     Route: 065
     Dates: start: 20210615, end: 20210615
  2. ABILIFY [Suspect]
     Active Substance: ARIPIPRAZOLE
     Dosage: 5 MG
     Route: 048
     Dates: start: 20210610, end: 20210618
  3. SLIVAN [Concomitant]
     Indication: PRODUCT USED FOR UNKNOWN INDICATION
     Dosage: 0.5 MG
     Route: 065
     Dates: start: 20210621, end: 20210621
  4. ABILIFY [Suspect]
     Active Substance: ARIPIPRAZOLE
     Indication: TOURETTE^S DISORDER
     Dosage: 2 MG
     Route: 048
     Dates: start: 20210601, end: 20210609
  5. CLONAZEPAM. [Concomitant]
     Active Substance: CLONAZEPAM
     Indication: PRODUCT USED FOR UNKNOWN INDICATION
     Dosage: 1T
     Route: 065
     Dates: start: 20210618, end: 20210621
  6. INDENOL [Concomitant]
     Active Substance: PROPRANOLOL HYDROCHLORIDE
     Indication: PRODUCT USED FOR UNKNOWN INDICATION
     Dosage: 20 MG (10MG?10MG)
     Route: 065
     Dates: start: 20210616, end: 20210620
  7. INDENOL [Concomitant]
     Active Substance: PROPRANOLOL HYDROCHLORIDE
     Dosage: 40 MG (20MG?20MG)
     Route: 065
     Dates: start: 20210621, end: 20210621
  8. ZANAPAM [Concomitant]
     Indication: PRODUCT USED FOR UNKNOWN INDICATION
     Dosage: 0.125 MG
     Route: 065
     Dates: start: 20210616, end: 20210617
  9. ALPRAM [Concomitant]
     Active Substance: ALPRAZOLAM
     Indication: PRODUCT USED FOR UNKNOWN INDICATION
     Dosage: 0.25 MG
     Route: 065
     Dates: start: 20210616, end: 20210617

REACTIONS (11)
  - Completed suicide [Fatal]
  - Palpitations [Unknown]
  - Arthralgia [Unknown]
  - Product use issue [Unknown]
  - Eating disorder [Unknown]
  - Poor quality sleep [Unknown]
  - Akathisia [Unknown]
  - Headache [Unknown]
  - Anxiety [Unknown]
  - Pyrexia [Unknown]
  - Therapy interrupted [Unknown]

NARRATIVE: CASE EVENT DATE: 20210601
